FAERS Safety Report 8795399 (Version 2)
Quarter: 2015Q2

REPORT INFORMATION
  Report Type: Report from Study
  Country: US (occurrence: US)
  Receive Date: 20120917
  Receipt Date: 20150408
  Transmission Date: 20150821
  Serious: Yes (Death)
  Sender: FDA-Public Use
  Company Number: US-ROCHE-1129256

PATIENT
  Age: 45 Year
  Sex: Female
  Weight: 50.45 kg

DRUGS (9)
  1. AVASTIN [Suspect]
     Active Substance: BEVACIZUMAB
     Route: 042
  2. BENADRYL [Concomitant]
     Active Substance: DIPHENHYDRAMINE HYDROCHLORIDE
     Route: 042
  3. NEUPOGEN [Concomitant]
     Active Substance: FILGRASTIM
     Route: 058
  4. ARANESP [Concomitant]
     Active Substance: DARBEPOETIN ALFA
     Route: 042
  5. KYTRIL [Concomitant]
     Active Substance: GRANISETRON HYDROCHLORIDE
     Route: 042
  6. NEULASTA [Concomitant]
     Active Substance: PEGFILGRASTIM
     Route: 058
  7. LEVAQUIN [Concomitant]
     Active Substance: LEVOFLOXACIN
  8. AVASTIN [Suspect]
     Active Substance: BEVACIZUMAB
     Indication: BREAST CANCER FEMALE
     Route: 042
     Dates: start: 20060126
  9. DEXAMETHASONE. [Concomitant]
     Active Substance: DEXAMETHASONE
     Route: 011

REACTIONS (6)
  - Death [Fatal]
  - Fatigue [Unknown]
  - Haematocrit decreased [Unknown]
  - Chest X-ray abnormal [Unknown]
  - Constipation [Unknown]
  - Off label use [Unknown]

NARRATIVE: CASE EVENT DATE: 20060620
